FAERS Safety Report 7494578-1 (Version None)
Quarter: 2011Q2

REPORT INFORMATION
  Report Type: 
  Country: None (occurrence: None)
  Receive Date: 20110520
  Receipt Date: 20110517
  Transmission Date: 20111010
  Serious: Yes (Death)
  Sender: FDA-Public Use
  Company Number: PHHY2011US32975

PATIENT
  Sex: Male

DRUGS (2)
  1. CLOZAPINE [Suspect]
     Indication: SCHIZOPHRENIA
     Dosage: 75 MG, QHS
     Route: 048
     Dates: start: 20110408
  2. ZYPREXA [Suspect]
     Dosage: 10 MG, BID
     Route: 048
     Dates: start: 20110331

REACTIONS (2)
  - DROWNING [None]
  - COMPLETED SUICIDE [None]
